FAERS Safety Report 21523761 (Version 1)
Quarter: 2022Q4

REPORT INFORMATION
  Report Type: Spontaneous
  Country: GB (occurrence: GB)
  Receive Date: 20221029
  Receipt Date: 20221029
  Transmission Date: 20230112
  Serious: Yes (Death, Other)
  Sender: FDA-Public Use
  Company Number: GB-LDELTA-NLLD0037451

PATIENT
  Age: 54 Year
  Sex: Male
  Weight: 104 kg

DRUGS (2)
  1. TRAMADOL [Suspect]
     Active Substance: TRAMADOL
     Indication: Product used for unknown indication
     Route: 065
  2. CLOZAPINE [Suspect]
     Active Substance: CLOZAPINE
     Indication: Product used for unknown indication
     Dosage: THERAPY DURATION : 3300 DAYS
     Route: 050
     Dates: start: 20120913, end: 20210925

REACTIONS (6)
  - Toxicity to various agents [Fatal]
  - Spinal osteoarthritis [Not Recovered/Not Resolved]
  - Arteriosclerosis [Not Recovered/Not Resolved]
  - Kidney fibrosis [Not Recovered/Not Resolved]
  - Renal cyst [Not Recovered/Not Resolved]
  - Postmortem blood drug level increased [Not Recovered/Not Resolved]

NARRATIVE: CASE EVENT DATE: 20210926
